FAERS Safety Report 4553427-1 (Version None)
Quarter: 2005Q1

REPORT INFORMATION
  Report Type: 
  Country: None (occurrence: None)
  Receive Date: 20050112
  Receipt Date: 20040910
  Transmission Date: 20050727
  Serious: Yes (Hospitalization)
  Sender: FDA-Public Use
  Company Number: 2004066278

PATIENT
  Age: 43 Year
  Sex: Female
  Weight: 68 kg

DRUGS (7)
  1. GEODON [Suspect]
     Indication: SCHIZOPHRENIA
     Dosage: 180 MG (1 IN 1 D), ORAL
     Route: 048
     Dates: start: 20040121, end: 20040315
  2. CARBAMAZEPINE [Concomitant]
  3. BIPERIDEN (BIPERIDEN) [Concomitant]
  4. DIAZEPAM [Concomitant]
  5. ETILEFRINE HYDROCHLORIDE (ETILEFRINE HYDROCHLORIDE) [Concomitant]
  6. HALOPERIDOL [Concomitant]
  7. ALPRAZOLAM [Concomitant]

REACTIONS (1)
  - PSYCHOMOTOR HYPERACTIVITY [None]
